FAERS Safety Report 4772698-X (Version None)
Quarter: 2005Q3

REPORT INFORMATION
  Report Type: 
  Country: None (occurrence: None)
  Receive Date: 20050915
  Receipt Date: 20050915
  Transmission Date: 20060218
  Serious: Yes (Hospitalization)
  Sender: FDA-Public Use
  Company Number: None

PATIENT
  Sex: Male
  Weight: 85.2762 kg

DRUGS (9)
  1. SULFASALAZINE [Suspect]
     Indication: PSORIATIC ARTHROPATHY
     Dosage: 1000 MG BID
  2. ATENOLOL [Concomitant]
  3. COLCHICINE [Concomitant]
  4. INSULIN 30/70 [Concomitant]
  5. IRBESARTAN [Concomitant]
  6. METFORMIN HCL [Concomitant]
  7. ROSIGLITAZONE [Concomitant]
  8. SILDENAFIL [Concomitant]
  9. TERAZOSIN HCL [Concomitant]

REACTIONS (4)
  - DRUG HYPERSENSITIVITY [None]
  - PHARYNGOLARYNGEAL PAIN [None]
  - RASH GENERALISED [None]
  - RESPIRATORY DISORDER [None]
